FAERS Safety Report 8326425-X (Version None)
Quarter: 2012Q2

REPORT INFORMATION
  Report Type: 
  Country: None (occurrence: None)
  Receive Date: 20120501
  Receipt Date: 20120430
  Transmission Date: 20120825
  Serious: Yes (Hospitalization)
  Sender: FDA-Public Use
  Company Number: US-ROCHE-1041886

PATIENT
  Sex: Male

DRUGS (1)
  1. ZELBORAF [Suspect]
     Indication: PRODUCT USED FOR UNKNOWN INDICATION

REACTIONS (9)
  - RASH GENERALISED [None]
  - OEDEMA PERIPHERAL [None]
  - FATIGUE [None]
  - BLISTER [None]
  - MYALGIA [None]
  - ORAL CANDIDIASIS [None]
  - SUNBURN [None]
  - ARTHRALGIA [None]
  - SKIN EXFOLIATION [None]
